FAERS Safety Report 7611428-0 (Version None)
Quarter: 2011Q3

REPORT INFORMATION
  Report Type: 
  Country: None (occurrence: None)
  Receive Date: 20110715
  Receipt Date: 20110615
  Transmission Date: 20111222
  Serious: No
  Sender: FDA-Public Use
  Company Number: US-BAYER-2011-052602

PATIENT
  Sex: Female

DRUGS (2)
  1. ALEVE (CAPLET) [Suspect]
     Indication: ARTHRITIS
     Dosage: 2 DF, UNK
     Route: 048
     Dates: start: 20110614
  2. ASPIRIN [Concomitant]
     Indication: PROPHYLAXIS

REACTIONS (2)
  - ABDOMINAL DISCOMFORT [None]
  - ABDOMINAL DISTENSION [None]
